FAERS Safety Report 13832629 (Version 1)
Quarter: 2017Q3

REPORT INFORMATION
  Report Type: Spontaneous
  Country: JP (occurrence: JP)
  Receive Date: 20170804
  Receipt Date: 20170804
  Transmission Date: 20171127
  Serious: Yes (Other)
  Sender: FDA-Public Use
  Company Number: PHJP2017JP018106

PATIENT
  Age: 69 Year
  Sex: Male
  Weight: 76 kg

DRUGS (2)
  1. TASIGNA [Suspect]
     Active Substance: NILOTINIB
     Dosage: 400 MG, QD
     Route: 048
     Dates: end: 201605
  2. TASIGNA [Suspect]
     Active Substance: NILOTINIB
     Indication: CHRONIC MYELOID LEUKAEMIA
     Dosage: 600 MG, QD
     Route: 048
     Dates: start: 201312

REACTIONS (10)
  - Hyperglycaemia [Not Recovered/Not Resolved]
  - Blood bilirubin increased [Unknown]
  - Hepatic function abnormal [Unknown]
  - Hypertriglyceridaemia [Unknown]
  - Bone marrow failure [Recovering/Resolving]
  - Neutrophil count decreased [Unknown]
  - Hypercholesterolaemia [Unknown]
  - Rash [Unknown]
  - Hyperlipasaemia [Unknown]
  - Platelet count decreased [Unknown]

NARRATIVE: CASE EVENT DATE: 2014
